FAERS Safety Report 19972452 (Version 1)
Quarter: 2021Q4

REPORT INFORMATION
  Report Type: Spontaneous
  Country: IL (occurrence: IL)
  Receive Date: 20211020
  Receipt Date: 20211020
  Transmission Date: 20220303
  Serious: Yes (Hospitalization)
  Sender: FDA-Public Use
  Company Number: IL-NOVOPROD-857026

PATIENT
  Sex: Female

DRUGS (1)
  1. SAXENDA [Suspect]
     Active Substance: LIRAGLUTIDE
     Indication: Product used for unknown indication
     Dosage: 3 MG, QD
     Route: 058
     Dates: start: 20211010

REACTIONS (7)
  - Mobility decreased [Unknown]
  - Fall [Unknown]
  - Cardiac disorder [Unknown]
  - Blood pressure increased [Unknown]
  - Vomiting [Unknown]
  - Diarrhoea [Unknown]
  - Off label use [Unknown]

NARRATIVE: CASE EVENT DATE: 20211010
